FAERS Safety Report 12128427 (Version 2)
Quarter: 2017Q1

REPORT INFORMATION
  Report Type: Spontaneous
  Country: US (occurrence: US)
  Receive Date: 20160229
  Receipt Date: 20170210
  Transmission Date: 20170428
  Serious: No
  Sender: FDA-Public Use
  Company Number: US-ACORDA-ACO_119100_2015

PATIENT
  Age: 39 Year
  Sex: Male

DRUGS (1)
  1. AMPYRA [Suspect]
     Active Substance: DALFAMPRIDINE
     Indication: PRODUCT USED FOR UNKNOWN INDICATION
     Dosage: UNK

REACTIONS (5)
  - Anal incontinence [Recovered/Resolved]
  - Condition aggravated [Recovered/Resolved]
  - Incontinence [Recovered/Resolved]
  - Memory impairment [Recovered/Resolved]
  - Urge incontinence [Recovered/Resolved]

NARRATIVE: CASE EVENT DATE: 201510
